FAERS Safety Report 4490787-4 (Version None)
Quarter: 2004Q4

REPORT INFORMATION
  Report Type: 
  Country: None (occurrence: None)
  Receive Date: 20041102
  Receipt Date: 20040527
  Transmission Date: 20050328
  Serious: Yes (Life-Threatening)
  Sender: FDA-Public Use
  Company Number: BE-ROCHE-369129

PATIENT
  Age: 32 Year
  Sex: Male
  Weight: 70 kg

DRUGS (4)
  1. PEG-INTERFERON ALFA 2A (RO 25-8310) [Suspect]
     Route: 058
     Dates: start: 20030627, end: 20040526
  2. RIBAVIRIN [Suspect]
     Route: 048
     Dates: start: 20030627, end: 20040526
  3. AMANTADINE [Suspect]
     Route: 048
     Dates: start: 20030627, end: 20040526
  4. PROZAC [Concomitant]
     Dates: start: 20030712

REACTIONS (5)
  - BRONCHOPNEUMONIA [None]
  - LUNG ABSCESS [None]
  - PREGNANCY [None]
  - TRANSMISSION OF DRUG VIA SEMEN [None]
  - UNINTENDED PREGNANCY [None]
